FAERS Safety Report 8024506-1 (Version None)
Quarter: 2012Q1

REPORT INFORMATION
  Report Type: 
  Country: None (occurrence: None)
  Receive Date: 20120105
  Receipt Date: 20120103
  Transmission Date: 20120608
  Serious: No
  Sender: FDA-Public Use
  Company Number: US-B.I. PHARMACEUTICALS,INC./RIDGEFIELD-2011-BP-09120BP

PATIENT
  Sex: Female

DRUGS (5)
  1. DILTIAZEM HCL [Concomitant]
     Indication: ATRIAL FIBRILLATION
  2. HYDROCHLOROTHIAZIDE [Concomitant]
     Indication: JOINT SWELLING
     Dosage: 25 MG
     Route: 048
     Dates: start: 19980101
  3. DILTIAZEM HCL [Concomitant]
     Indication: HYPERTENSION
     Dosage: 180 MG
     Route: 048
     Dates: start: 19980101
  4. PRADAXA [Suspect]
     Indication: ATRIAL FIBRILLATION
     Dosage: 300 MG
     Route: 048
     Dates: start: 20110201
  5. SIMVASTATIN [Concomitant]
     Indication: BLOOD CHOLESTEROL INCREASED
     Dosage: 5 MG
     Route: 048

REACTIONS (10)
  - BLOOD PRESSURE DIASTOLIC INCREASED [None]
  - IRRITABLE BOWEL SYNDROME [None]
  - ABDOMINAL PAIN UPPER [None]
  - FAECES PALE [None]
  - CHAPPED LIPS [None]
  - LIP DRY [None]
  - FEELING COLD [None]
  - CHEILITIS [None]
  - GLOSSITIS [None]
  - HEART RATE INCREASED [None]
